FAERS Safety Report 7639886-6 (Version None)
Quarter: 2011Q3

REPORT INFORMATION
  Report Type: 
  Country: None (occurrence: None)
  Receive Date: 20110727
  Receipt Date: 20110714
  Transmission Date: 20111222
  Serious: Yes (Other)
  Sender: FDA-Public Use
  Company Number: DK-US-EMD SERONO, INC.-7071569

PATIENT
  Sex: Female
  Weight: 62 kg

DRUGS (2)
  1. PERGOTIME [Suspect]
     Indication: INFERTILITY FEMALE
     Dates: start: 20070101, end: 20070101
  2. PERGOTIME [Suspect]
     Dates: start: 20080801

REACTIONS (1)
  - DEPRESSION [None]
